FAERS Safety Report 14810505 (Version 1)
Quarter: 2018Q2

REPORT INFORMATION
  Report Type: Report from Study
  Country: US (occurrence: US)
  Receive Date: 20180425
  Receipt Date: 20180425
  Transmission Date: 20180711
  Serious: No
  Sender: FDA-Public Use
  Company Number: US-AMGEN-USASL2018030337

PATIENT
  Sex: Male

DRUGS (1)
  1. REPATHA [Suspect]
     Active Substance: EVOLOCUMAB
     Indication: HYPERCHOLESTEROLAEMIA
     Dosage: 140 MG, Q2WK
     Route: 065

REACTIONS (8)
  - Visual brightness [Recovering/Resolving]
  - Lip dry [Recovering/Resolving]
  - Eye pain [Recovering/Resolving]
  - Eyelid skin dryness [Recovering/Resolving]
  - Feeling abnormal [Recovering/Resolving]
  - Skin fissures [Recovering/Resolving]
  - Chapped lips [Recovering/Resolving]
  - Dry throat [Recovering/Resolving]
